FAERS Safety Report 4303514-8 (Version None)
Quarter: 2004Q1

REPORT INFORMATION
  Report Type: 
  Country: None (occurrence: None)
  Receive Date: 20040223
  Receipt Date: 20040210
  Transmission Date: 20041129
  Serious: Yes (Life-Threatening, Hospitalization, Other)
  Sender: FDA-Public Use
  Company Number: 2003112106

PATIENT
  Age: 48 Year
  Sex: Female
  Weight: 53.6 kg

DRUGS (10)
  1. SULPERAZON (CEFOPERAZONE, SULBACTAM) [Suspect]
     Indication: CHOLECYSTITIS
     Dosage: 2 GRAM, INTRAVENOUS
     Route: 042
     Dates: start: 20031011, end: 20031013
  2. ACETAMINOPHEN [Suspect]
     Indication: PYREXIA
     Dosage: 1 GRAM (PRN), ORAL
     Route: 048
     Dates: start: 20031010, end: 20031017
  3. RISPERIDONE [Concomitant]
  4. VEGETAMIN (PHENOBARBITAL, PROMETHAZINE HYDROCHLORIDE, CHLORPROMAZINE H [Concomitant]
  5. BIPERIDEN HYDROCHLORIDE TAB [Concomitant]
  6. SENNOSIDE A (SENNOSIDE A) [Concomitant]
  7. STRONG NEO-MINOPHAGEN C (CYSTEINE, AMINOACETIC ACID, GLYCYRRHIZIC ACID [Concomitant]
  8. GLUTATHIONE (GLUTATHIONE) [Concomitant]
  9. PREDNISOLONE [Concomitant]
  10. DANTROLENE SODIUM [Concomitant]

REACTIONS (18)
  - ALANINE AMINOTRANSFERASE INCREASED [None]
  - ANOREXIA [None]
  - ASPARTATE AMINOTRANSFERASE INCREASED [None]
  - BLOOD CREATINE PHOSPHOKINASE INCREASED [None]
  - BLOOD LACTATE DEHYDROGENASE INCREASED [None]
  - C-REACTIVE PROTEIN INCREASED [None]
  - EOSINOPHIL COUNT DECREASED [None]
  - ERYTHEMA MULTIFORME [None]
  - GAMMA-GLUTAMYLTRANSFERASE INCREASED [None]
  - GENERAL PHYSICAL HEALTH DETERIORATION [None]
  - HAEMATOCRIT DECREASED [None]
  - HAEMOGLOBIN DECREASED [None]
  - JAUNDICE [None]
  - LYMPHOCYTE STIMULATION TEST POSITIVE [None]
  - PYREXIA [None]
  - RED BLOOD CELL COUNT DECREASED [None]
  - SKIN NECROSIS [None]
  - WHITE BLOOD CELL COUNT INCREASED [None]
